FAERS Safety Report 10080775 (Version 1)
Quarter: 2014Q2

REPORT INFORMATION
  Report Type: Spontaneous
  Country: GB (occurrence: GB)
  Receive Date: 20140416
  Receipt Date: 20140416
  Transmission Date: 20141212
  Serious: Yes (Other)
  Sender: FDA-Public Use
  Company Number: GB-ROCHE-1383677

PATIENT
  Age: 56 Year
  Sex: Female
  Weight: 59.87 kg

DRUGS (1)
  1. NAPROXEN [Suspect]
     Indication: BURSITIS
     Route: 048
     Dates: start: 20140324, end: 20140402

REACTIONS (3)
  - Dyspepsia [Recovered/Resolved]
  - Nausea [Recovered/Resolved]
  - Oropharyngeal pain [Recovered/Resolved]
